FAERS Safety Report 5477621-0 (Version None)
Quarter: 2007Q4

REPORT INFORMATION
  Report Type: 
  Country: None (occurrence: None)
  Receive Date: 20071002
  Receipt Date: 20070914
  Transmission Date: 20080405
  Serious: Yes (Hospitalization)
  Sender: FDA-Public Use
  Company Number: 310002L07ITA

PATIENT
  Age: 33 Year
  Sex: Female

DRUGS (2)
  1. GONAL-F [Suspect]
     Indication: OVULATION INDUCTION
     Dosage: 125 IU, 1 IN 1 DAYS
  2. DECAPEPTYL (TRIPTORELIN ACETATE) [Concomitant]

REACTIONS (6)
  - ABDOMINAL DISCOMFORT [None]
  - CHEST PAIN [None]
  - DYSPNOEA [None]
  - HYDROTHORAX [None]
  - OVARIAN HYPERSTIMULATION SYNDROME [None]
  - PROPHYLAXIS [None]
